FAERS Safety Report 19419357 (Version 1)
Quarter: 2021Q2

REPORT INFORMATION
  Report Type: Spontaneous
  Country: US (occurrence: US)
  Receive Date: 20210615
  Receipt Date: 20210615
  Transmission Date: 20210717
  Serious: No
  Sender: FDA-Public Use
  Company Number: US-ORGANON-O2106USA000370

PATIENT
  Sex: Female

DRUGS (5)
  1. HCG [Concomitant]
     Active Substance: GONADOTROPHIN, CHORIONIC
  2. GANIRELIX ACETATE INJECTION [Concomitant]
     Active Substance: GANIRELIX ACETATE
  3. MENOPUR [Concomitant]
     Active Substance: FOLLITROPIN\LUTEINIZING HORMONE
  4. PROGESTERONE. [Concomitant]
     Active Substance: PROGESTERONE
  5. FOLLISTIM AQ [Suspect]
     Active Substance: FOLLITROPIN
     Indication: INFERTILITY FEMALE
     Dosage: 75 TO 300 UNITS,AS DIRECTED
     Route: 058
     Dates: start: 20180709

REACTIONS (3)
  - Injection site reaction [Unknown]
  - Pruritus [Unknown]
  - Urticaria [Unknown]
